FAERS Safety Report 7212306-1 (Version None)
Quarter: 2011Q1

REPORT INFORMATION
  Report Type: 
  Country: None (occurrence: None)
  Receive Date: 20110106
  Receipt Date: 20101228
  Transmission Date: 20110831
  Serious: Yes (Hospitalization, Other)
  Sender: FDA-Public Use
  Company Number: PHFR2010IE05101

PATIENT
  Sex: Female

DRUGS (2)
  1. CLOZARIL [Suspect]
     Indication: SCHIZOPHRENIA
     Dosage: 650 MG/DAY
     Route: 048
     Dates: start: 20010206
  2. CHEMOTHERAPEUTICS NOS [Concomitant]
     Route: 065

REACTIONS (2)
  - OESOPHAGEAL NEOPLASM [None]
  - DYSPHAGIA [None]
